FAERS Safety Report 16150214 (Version 3)
Quarter: 2019Q2

REPORT INFORMATION
  Report Type: Spontaneous
  Country: US (occurrence: US)
  Receive Date: 20190402
  Receipt Date: 20190529
  Transmission Date: 20190711
  Serious: Yes (Other)
  Sender: FDA-Public Use
  Company Number: US-ASTRAZENECA-2019SE47282

PATIENT
  Age: 812 Month
  Sex: Female
  Weight: 81.6 kg

DRUGS (46)
  1. NEXIUM 24HR [Suspect]
     Active Substance: ESOMEPRAZOLE MAGNESIUM
     Indication: GASTROOESOPHAGEAL REFLUX DISEASE
     Route: 048
     Dates: start: 20160920, end: 20161020
  2. ESOMEPRAZOLE. [Suspect]
     Active Substance: ESOMEPRAZOLE MAGNESIUM
     Indication: GASTROOESOPHAGEAL REFLUX DISEASE
     Dosage: GENERIC
     Route: 065
     Dates: start: 201612
  3. PREVACID 24 HR [Suspect]
     Active Substance: LANSOPRAZOLE
     Indication: GASTROOESOPHAGEAL REFLUX DISEASE
     Route: 065
     Dates: start: 20160401, end: 20160601
  4. LANSOPRAZOLE. [Suspect]
     Active Substance: LANSOPRAZOLE
     Indication: GASTROOESOPHAGEAL REFLUX DISEASE
     Route: 065
     Dates: start: 20160401, end: 20160601
  5. LANSOPRAZOLE. [Suspect]
     Active Substance: LANSOPRAZOLE
     Indication: GASTROOESOPHAGEAL REFLUX DISEASE
     Dosage: GENERIC
     Route: 065
     Dates: start: 20130517, end: 20130617
  6. PANTOPRAZOLE [Suspect]
     Active Substance: PANTOPRAZOLE
     Indication: GASTROOESOPHAGEAL REFLUX DISEASE
     Route: 065
     Dates: start: 20100719, end: 20110926
  7. DOXYCYCLINE. [Concomitant]
     Active Substance: DOXYCYCLINE
  8. FLONASE [Concomitant]
     Active Substance: FLUTICASONE PROPIONATE
  9. ARMOUR THYROID [Concomitant]
     Active Substance: THYROID, PORCINE
  10. AMOXICILLIN. [Concomitant]
     Active Substance: AMOXICILLIN
  11. FLUCONAZOLE. [Concomitant]
     Active Substance: FLUCONAZOLE
  12. ALBUTEROL. [Concomitant]
     Active Substance: ALBUTEROL
  13. HYDROCODONE [Concomitant]
     Active Substance: HYDROCODONE
  14. COLACE [Concomitant]
     Active Substance: DOCUSATE SODIUM
  15. ALLOPURINOL. [Concomitant]
     Active Substance: ALLOPURINOL
  16. ASPIRIN. [Concomitant]
     Active Substance: ASPIRIN
  17. RANITIDINE. [Concomitant]
     Active Substance: RANITIDINE
  18. DOXYCYCLINE. [Concomitant]
     Active Substance: DOXYCYCLINE
  19. MUPIROCIN. [Concomitant]
     Active Substance: MUPIROCIN
  20. TRAMADOL. [Concomitant]
     Active Substance: TRAMADOL
  21. CITRACAL [Concomitant]
     Active Substance: CALCIUM CITRATE
  22. LANSOPRAZOLE. [Suspect]
     Active Substance: LANSOPRAZOLE
     Indication: GASTROOESOPHAGEAL REFLUX DISEASE
     Dosage: GENERIC
     Route: 065
     Dates: start: 20140806
  23. PANTOPRAZOLE [Suspect]
     Active Substance: PANTOPRAZOLE
     Indication: GASTROOESOPHAGEAL REFLUX DISEASE
     Route: 065
     Dates: start: 20110223, end: 20140218
  24. ERYTHROMYCIN. [Concomitant]
     Active Substance: ERYTHROMYCIN
  25. DEXILANT [Suspect]
     Active Substance: DEXLANSOPRAZOLE
     Indication: GASTROOESOPHAGEAL REFLUX DISEASE
     Route: 065
     Dates: start: 20140216, end: 20151219
  26. DEXILANT [Suspect]
     Active Substance: DEXLANSOPRAZOLE
     Indication: GASTROOESOPHAGEAL REFLUX DISEASE
     Route: 048
     Dates: start: 20140206, end: 20140305
  27. CELECOXIB. [Concomitant]
     Active Substance: CELECOXIB
  28. AZITHROMYCIN ANHYDROUS. [Concomitant]
     Active Substance: AZITHROMYCIN ANHYDROUS
  29. CEPHALEXIN. [Concomitant]
     Active Substance: CEPHALEXIN
  30. PROPOFOL. [Concomitant]
     Active Substance: PROPOFOL
  31. MAGNESIUM GLUCONATE [Concomitant]
     Active Substance: MAGNESIUM GLUCONATE
  32. PEPCID AC [Concomitant]
     Active Substance: FAMOTIDINE
  33. LIDOCAINE. [Concomitant]
     Active Substance: LIDOCAINE
  34. VITAMIN B6 [Concomitant]
     Active Substance: PYRIDOXINE HYDROCHLORIDE
  35. PANTOPRAZOLE [Suspect]
     Active Substance: PANTOPRAZOLE
     Indication: GASTROOESOPHAGEAL REFLUX DISEASE
     Route: 065
     Dates: start: 20110927, end: 20111222
  36. TORADOL [Concomitant]
     Active Substance: KETOROLAC TROMETHAMINE
  37. LEVAQUIN [Concomitant]
     Active Substance: LEVOFLOXACIN
  38. NADOLOL. [Concomitant]
     Active Substance: NADOLOL
  39. ZYRTEC [Concomitant]
     Active Substance: CETIRIZINE HYDROCHLORIDE
  40. CITRUCEL [Concomitant]
     Active Substance: METHYLCELLULOSE (4000 MPA.S)
  41. ESOMEPRAZOLE. [Suspect]
     Active Substance: ESOMEPRAZOLE MAGNESIUM
     Indication: GASTROOESOPHAGEAL REFLUX DISEASE
     Dosage: GENERIC
     Route: 065
     Dates: start: 20161217
  42. ROBAXIN [Concomitant]
     Active Substance: METHOCARBAMOL
  43. VYTORIN [Concomitant]
     Active Substance: EZETIMIBE\SIMVASTATIN
  44. ALLOPURINOL. [Concomitant]
     Active Substance: ALLOPURINOL
  45. LEVOTHYROXINE. [Concomitant]
     Active Substance: LEVOTHYROXINE
  46. NADOLOL. [Concomitant]
     Active Substance: NADOLOL

REACTIONS (2)
  - Chronic kidney disease [Not Recovered/Not Resolved]
  - Renal failure [Unknown]

NARRATIVE: CASE EVENT DATE: 201503
